FAERS Safety Report 6083110-5 (Version None)
Quarter: 2009Q1

REPORT INFORMATION
  Report Type: 
  Country: None (occurrence: None)
  Receive Date: 20090213
  Receipt Date: 20090213
  Transmission Date: 20090719
  Serious: Yes (Hospitalization)
  Sender: FDA-Public Use
  Company Number: None

PATIENT
  Sex: Female

DRUGS (6)
  1. YAZ [Suspect]
     Dosage: 1 TAB ONCE DAILY PO
     Route: 048
  2. DEPAKOTE [Concomitant]
  3. PROZAC [Concomitant]
  4. ASPIRIN [Concomitant]
  5. MULTI-VITAMIN [Concomitant]
  6. CALCIUM [Concomitant]

REACTIONS (3)
  - COLITIS ISCHAEMIC [None]
  - HYPERCOAGULATION [None]
  - LOWER GASTROINTESTINAL HAEMORRHAGE [None]
